FAERS Safety Report 25530850 (Version 1)
Quarter: 2025Q3

REPORT INFORMATION
  Report Type: Spontaneous
  Country: US (occurrence: US)
  Receive Date: 20250708
  Receipt Date: 20250708
  Transmission Date: 20251021
  Serious: No
  Sender: MERCK SHARP & DOHME LLC
  Company Number: US-009507513-2305371

PATIENT
  Age: 66 Year
  Sex: Male

DRUGS (10)
  1. LISINOPRIL [Suspect]
     Active Substance: LISINOPRIL
     Route: 048
  2. multivitamin centrum silver ultra men^s oral daily [Concomitant]
     Indication: Vitamin supplementation
     Route: 048
     Dates: start: 200011
  3. GABAPENTIN [Concomitant]
     Active Substance: GABAPENTIN
     Indication: Essential tremor
     Dosage: DOSE: 300 MG DAILY, BID; STRENGTH: 600 MG
     Route: 048
     Dates: start: 200011
  4. ALBUTEROL SULFATE [Concomitant]
     Active Substance: ALBUTEROL SULFATE
     Indication: Chronic obstructive pulmonary disease
     Route: 055
     Dates: start: 200911
  5. AMLODIPINE [Concomitant]
     Active Substance: AMLODIPINE BESYLATE
     Indication: Hypertension
     Dosage: STRENGTH: 10 MG
     Route: 048
     Dates: start: 201101
  6. FLUTICASONE PROPIONATE [Concomitant]
     Active Substance: FLUTICASONE PROPIONATE
     Indication: Seasonal allergy
     Route: 055
     Dates: start: 201311
  7. PRAVASTATIN [Concomitant]
     Active Substance: PRAVASTATIN
     Indication: Hyperlipidaemia
     Dosage: STRENGTH: 80 MG
     Route: 048
     Dates: start: 201401
  8. TRELEGY ELLIPTA [Concomitant]
     Active Substance: FLUTICASONE FUROATE\UMECLIDINIUM BROMIDE\VILANTEROL TRIFENATATE
     Indication: Chronic obstructive pulmonary disease
     Dosage: STRENGTH: 100 UG; FORM: INHALANT
     Route: 055
     Dates: start: 201501
  9. MONTELUKAST [Concomitant]
     Active Substance: MONTELUKAST
     Indication: Chronic obstructive pulmonary disease
     Dosage: STRENGTH: 10 MG
     Route: 048
     Dates: start: 201501
  10. AZITHROMYCIN [Concomitant]
     Active Substance: AZITHROMYCIN
     Indication: Chronic obstructive pulmonary disease
     Route: 048
     Dates: start: 201711

REACTIONS (1)
  - Drug hypersensitivity [Unknown]

NARRATIVE: CASE EVENT DATE: 20170101
